FAERS Safety Report 4412287-X (Version None)
Quarter: 2004Q3

REPORT INFORMATION
  Report Type: 
  Country: None (occurrence: None)
  Receive Date: 20040727
  Receipt Date: 20040713
  Transmission Date: 20050211
  Serious: Yes (Other)
  Sender: FDA-Public Use
  Company Number: US-JNJFOC-20040701490

PATIENT
  Age: 78 Year
  Sex: Female
  Weight: 79.3795 kg

DRUGS (10)
  1. DOXIL [Suspect]
     Indication: OVARIAN CANCER
     Dosage: 50 MG/ M2, 1 IN 21 DAY, INTRAVENOUS
     Route: 042
     Dates: start: 20031006, end: 20040202
  2. SYNTHROID [Concomitant]
  3. DIGOXIN [Concomitant]
  4. LASIX [Concomitant]
  5. DIOVAN [Concomitant]
  6. VERAPAMIL [Concomitant]
  7. COUMADIN [Concomitant]
  8. PROTONIX [Concomitant]
  9. OXYCODONE (OXYCODONE) [Concomitant]
  10. PREDNISONE [Concomitant]

REACTIONS (7)
  - ALVEOLITIS ALLERGIC [None]
  - CONDITION AGGRAVATED [None]
  - INFECTION [None]
  - INTERSTITIAL LUNG DISEASE [None]
  - OEDEMA [None]
  - PNEUMONITIS [None]
  - RESTRICTIVE PULMONARY DISEASE [None]
